FAERS Safety Report 14675401 (Version 1)
Quarter: 2018Q1

REPORT INFORMATION
  Report Type: Spontaneous
  Country: US (occurrence: US)
  Receive Date: 20180323
  Receipt Date: 20180323
  Transmission Date: 20180509
  Serious: Yes (Death, Hospitalization)
  Sender: FDA-Public Use
  Company Number: US-BAYER-2018-052140

PATIENT
  Age: 44 Year
  Sex: Male

DRUGS (1)
  1. PARACETAMOL [Suspect]
     Active Substance: ACETAMINOPHEN
     Dosage: UNK

REACTIONS (6)
  - Hyperkalaemia [None]
  - Metabolic acidosis [None]
  - Acute kidney injury [None]
  - Toxicity to various agents [None]
  - Cardiac arrest [Fatal]
  - Acute hepatic failure [Fatal]
